FAERS Safety Report 5616505-1 (Version None)
Quarter: 2008Q1

REPORT INFORMATION
  Report Type: 
  Country: None (occurrence: None)
  Receive Date: 20080207
  Receipt Date: 20080129
  Transmission Date: 20080703
  Serious: Yes (Hospitalization)
  Sender: FDA-Public Use
  Company Number: JP-ELI_LILLY_AND_COMPANY-JP200801007110

PATIENT
  Sex: Female

DRUGS (9)
  1. EVISTA [Suspect]
     Dosage: 60 MG, DAILY (1/D)
     Route: 048
     Dates: start: 20070101
  2. JUVELA [Concomitant]
     Dosage: 600 MG, 3/D
  3. MUCOSTA [Concomitant]
     Dosage: 300 MG, 3/D
  4. AMLODIPINE BESYLATE [Concomitant]
     Dosage: 5 MG, DAILY (1/D)
  5. DEPAS [Concomitant]
     Dosage: 1 MG, 2/D
  6. BEZATATE [Concomitant]
     Dosage: 400 MG, 2/D
  7. GASTER [Concomitant]
     Dosage: 40 MG, 2/D
  8. VITANEURIN [Concomitant]
     Dosage: 100 MG, 2/D
  9. LOXOMARIN [Concomitant]
     Dosage: 60 MG, AS NEEDED

REACTIONS (1)
  - THROMBOANGIITIS OBLITERANS [None]
